FAERS Safety Report 10103275 (Version 4)
Quarter: 2014Q4

REPORT INFORMATION
  Report Type: Spontaneous
  Country: AU (occurrence: AU)
  Receive Date: 20140424
  Receipt Date: 20141219
  Transmission Date: 20150528
  Serious: Yes (Hospitalization, Other)
  Sender: FDA-Public Use
  Company Number: AU-PFIZER INC-2014111702

PATIENT
  Sex: Male

DRUGS (1)
  1. LYRICA [Suspect]
     Active Substance: PREGABALIN
     Indication: NEUROPATHY PERIPHERAL
     Dosage: UNK

REACTIONS (7)
  - Disease progression [Unknown]
  - Drug ineffective [Unknown]
  - Suicidal ideation [Unknown]
  - Post-traumatic stress disorder [Unknown]
  - Ataxia [Unknown]
  - Weight increased [Unknown]
  - Depression [Unknown]
